FAERS Safety Report 11451461 (Version 2)
Quarter: 2015Q4

REPORT INFORMATION
  Report Type: Report from Study
  Country: BR (occurrence: BR)
  Receive Date: 20150903
  Receipt Date: 20151201
  Transmission Date: 20160304
  Serious: Yes (Other)
  Sender: FDA-Public Use
  Company Number: BR-ABBVIE-15K-020-1383858-00

PATIENT
  Sex: Female
  Weight: 60 kg

DRUGS (11)
  1. HUMIRA [Suspect]
     Active Substance: ADALIMUMAB
     Indication: RHEUMATOID ARTHRITIS
     Route: 058
     Dates: start: 20120814, end: 201507
  2. CALTREN [Concomitant]
     Active Substance: NITRENDIPINE
     Indication: HYPERTENSION
     Route: 048
     Dates: start: 2012
  3. HYDROXYCHLOROQUINE [Concomitant]
     Active Substance: HYDROXYCHLOROQUINE
     Indication: ARTHRITIS
     Dosage: SUPPOSED TO LAST FOR 30 DAYS
     Route: 048
     Dates: start: 20150420
  4. CHLOROQUINE PHOSPHATE. [Concomitant]
     Active Substance: CHLOROQUINE PHOSPHATE
     Indication: ARTHRALGIA
     Route: 048
  5. RANITIDINE [Concomitant]
     Active Substance: RANITIDINE\RANITIDINE HYDROCHLORIDE
     Indication: ARTHRITIS
     Dosage: SUPPOSED TO LAST FOR 30 DAYS
     Route: 048
     Dates: start: 20150420
  6. NIMESULIDE [Concomitant]
     Active Substance: NIMESULIDE
     Indication: ARTHRALGIA
     Route: 048
  7. OSCAL D [Concomitant]
     Active Substance: CALCIUM CARBONATE\CHOLECALCIFEROL
     Indication: BONE DISORDER
     Route: 048
     Dates: start: 201507
  8. PREDNISONE. [Concomitant]
     Active Substance: PREDNISONE
     Indication: ARTHRALGIA
     Route: 048
  9. HUMIRA [Suspect]
     Active Substance: ADALIMUMAB
     Route: 058
  10. LEVOID [Concomitant]
     Active Substance: LEVOTHYROXINE
     Indication: HYPERTHYROIDISM
     Route: 048
     Dates: start: 2013
  11. OSCAL D [Concomitant]
     Active Substance: CALCIUM CARBONATE\CHOLECALCIFEROL
     Route: 048
     Dates: start: 201505

REACTIONS (4)
  - Atrophy [Recovered/Resolved]
  - Pain in extremity [Not Recovered/Not Resolved]
  - Osteoarthritis [Recovered/Resolved]
  - Foot deformity [Recovered/Resolved]

NARRATIVE: CASE EVENT DATE: 2014
